FAERS Safety Report 24283722 (Version 2)
Quarter: 2024Q3

REPORT INFORMATION
  Report Type: Report from Study
  Country: CO (occurrence: CO)
  Receive Date: 20240905
  Receipt Date: 20240906
  Transmission Date: 20241017
  Serious: Yes (Other)
  Sender: ABBVIE
  Company Number: CO-ABBVIE-5899418

PATIENT
  Sex: Female
  Weight: 74 kg

DRUGS (1)
  1. SKYRIZI [Suspect]
     Active Substance: RISANKIZUMAB-RZAA
     Indication: Psoriasis
     Dosage: FORM STRENGTH : 150 MILLIGRAMS
     Route: 058
     Dates: start: 20230718, end: 20240404

REACTIONS (8)
  - Blood pressure abnormal [Recovering/Resolving]
  - Pyrexia [Not Recovered/Not Resolved]
  - Chest pain [Recovering/Resolving]
  - Skin haemorrhage [Not Recovered/Not Resolved]
  - Hypertension [Recovering/Resolving]
  - Psoriasis [Not Recovered/Not Resolved]
  - Blood pressure abnormal [Recovering/Resolving]
  - Pain in extremity [Not Recovered/Not Resolved]

NARRATIVE: CASE EVENT DATE: 20240101
